FAERS Safety Report 7671394-9 (Version None)
Quarter: 2011Q3

REPORT INFORMATION
  Report Type: 
  Country: None (occurrence: None)
  Receive Date: 20110809
  Receipt Date: 20110803
  Transmission Date: 20111222
  Serious: Yes (Other)
  Sender: FDA-Public Use
  Company Number: BR-PFIZER INC-2011178315

PATIENT
  Age: 42 Year
  Sex: Female
  Weight: 53 kg

DRUGS (1)
  1. GEODON [Suspect]
     Indication: BIPOLAR DISORDER
     Dosage: UNK
     Route: 048
     Dates: start: 20110501

REACTIONS (3)
  - GINGIVAL BLISTER [None]
  - DRY MOUTH [None]
  - GINGIVAL SWELLING [None]
